FAERS Safety Report 8001806-2 (Version None)
Quarter: 2011Q4

REPORT INFORMATION
  Report Type: 
  Country: None (occurrence: None)
  Receive Date: 20111219
  Receipt Date: 20111207
  Transmission Date: 20120403
  Serious: Yes (Other)
  Sender: FDA-Public Use
  Company Number: TPA2011A08273

PATIENT
  Sex: Female

DRUGS (1)
  1. ACTOS [Suspect]

REACTIONS (4)
  - WEIGHT DECREASED [None]
  - DECREASED APPETITE [None]
  - GASTROINTESTINAL DISORDER [None]
  - BLADDER CANCER [None]
